FAERS Safety Report 12108848 (Version 1)
Quarter: 2016Q1

REPORT INFORMATION
  Report Type: Spontaneous
  Country: US (occurrence: None)
  Receive Date: 20160222
  Receipt Date: 20160222
  Transmission Date: 20160526
  Serious: No
  Sender: FDA-Public Use
  Company Number: None

PATIENT
  Age: 47 Year
  Sex: Female
  Weight: 97.52 kg

DRUGS (10)
  1. VESICARE [Suspect]
     Active Substance: SOLIFENACIN SUCCINATE
     Indication: BLADDER DISORDER
     Dosage: 1 PILL?TAKEN AT BEDTIME?TAKEN BY MOUTH
     Route: 048
     Dates: start: 20160122, end: 20160212
  2. GABAPENTIN. [Concomitant]
     Active Substance: GABAPENTIN
  3. VITAMIN D [Concomitant]
     Active Substance: CHOLECALCIFEROL
  4. PHENTERMINE. [Concomitant]
     Active Substance: PHENTERMINE
  5. VESICARE [Suspect]
     Active Substance: SOLIFENACIN SUCCINATE
     Indication: MICTURITION URGENCY
     Dosage: 1 PILL?TAKEN AT BEDTIME?TAKEN BY MOUTH
     Route: 048
     Dates: start: 20160122, end: 20160212
  6. METFORMIN [Concomitant]
     Active Substance: METFORMIN HYDROCHLORIDE
  7. BRISDELLE [Suspect]
     Active Substance: PAROXETINE MESYLATE
     Indication: HOT FLUSH
     Dosage: 1 PILL ?AT BEDTIME?TAKEN BY MOUTH
     Route: 048
     Dates: start: 20160101, end: 20160212
  8. DIFLUNISAL. [Concomitant]
     Active Substance: DIFLUNISAL
  9. ALEVE [Concomitant]
     Active Substance: NAPROXEN SODIUM
  10. PHENERGAN [Concomitant]
     Active Substance: PROMETHAZINE HYDROCHLORIDE

REACTIONS (12)
  - Mood altered [None]
  - Tachyphrenia [None]
  - Energy increased [None]
  - Dizziness [None]
  - Urticaria [None]
  - Flushing [None]
  - Asthenia [None]
  - Presyncope [None]
  - Logorrhoea [None]
  - Fatigue [None]
  - Aggression [None]
  - Heat exhaustion [None]

NARRATIVE: CASE EVENT DATE: 20160209
